FAERS Safety Report 23579348 (Version 1)
Quarter: 2024Q1

REPORT INFORMATION
  Report Type: Spontaneous
  Country: PL (occurrence: PL)
  Receive Date: 20240229
  Receipt Date: 20240229
  Transmission Date: 20240409
  Serious: Yes (Other)
  Sender: FDA-Public Use
  Company Number: None

PATIENT
  Age: 62 Year
  Sex: Female
  Weight: 62 kg

DRUGS (5)
  1. PACLITAXEL [Suspect]
     Active Substance: PACLITAXEL
     Indication: Breast cancer female
     Dosage: THERAPY ONGOING
     Dates: start: 20230612, end: 20230612
  2. CLEMASTINE [Concomitant]
     Active Substance: CLEMASTINE
     Indication: Breast cancer female
     Dosage: THERAPY ONGOING
     Dates: start: 20230612, end: 20230612
  3. FAMOGAST [Concomitant]
     Indication: Breast cancer female
     Dosage: THERAPY ONGOING
     Dates: start: 20230612, end: 20230612
  4. DEXAMETHASONE [Concomitant]
     Active Substance: DEXAMETHASONE
     Indication: Breast cancer female
     Dosage: THERAPY ONGOING
     Dates: start: 20230612, end: 20230612
  5. ONDANSETRON [Concomitant]
     Active Substance: ONDANSETRON
     Indication: Breast cancer female
     Dosage: THERAPY ONGOING
     Dates: start: 20230612, end: 20230612

REACTIONS (4)
  - Choking sensation [Recovered/Resolved]
  - Cough [Recovered/Resolved]
  - Erythema [Recovered/Resolved]
  - Blood pressure abnormal [Recovered/Resolved]

NARRATIVE: CASE EVENT DATE: 20230612
